FAERS Safety Report 18629793 (Version 1)
Quarter: 2020Q4

REPORT INFORMATION
  Report Type: Spontaneous
  Country: GB (occurrence: GB)
  Receive Date: 20201217
  Receipt Date: 20201217
  Transmission Date: 20210114
  Serious: Yes (Life-Threatening, Hospitalization)
  Sender: FDA-Public Use
  Company Number: GB-ALLERGAN-2047774US

PATIENT
  Sex: Female
  Weight: 65.31 kg

DRUGS (4)
  1. PREDNISOLONE UNK [Suspect]
     Active Substance: PREDNISOLONE
     Indication: PRODUCT USED FOR UNKNOWN INDICATION
     Dosage: UNK
  2. EUMOVATE [Suspect]
     Active Substance: CLOBETASONE BUTYRATE
     Indication: ECZEMA
     Dosage: UNK
     Route: 061
     Dates: start: 20100506, end: 20200310
  3. BETNOVATE [Suspect]
     Active Substance: BETAMETHASONE
     Indication: ECZEMA
     Dosage: UNK
     Route: 061
     Dates: start: 20140510, end: 20200310
  4. DERMOVATE [Suspect]
     Active Substance: CLOBETASOL
     Indication: ECZEMA
     Dosage: UNK
     Route: 061
     Dates: start: 20160509, end: 20180310

REACTIONS (10)
  - Skin burning sensation [Unknown]
  - Steroid withdrawal syndrome [Unknown]
  - Erythema [Unknown]
  - Skin infection [Unknown]
  - Dry skin [Unknown]
  - Insomnia [Unknown]
  - Rash [Not Recovered/Not Resolved]
  - Skin exfoliation [Unknown]
  - Skin weeping [Unknown]
  - Skin swelling [Unknown]

NARRATIVE: CASE EVENT DATE: 20180310
